FAERS Safety Report 9886729 (Version 2)
Quarter: 2014Q2

REPORT INFORMATION
  Report Type: Spontaneous
  Country: US (occurrence: US)
  Receive Date: 20140210
  Receipt Date: 20140619
  Transmission Date: 20141212
  Serious: Yes (Other)
  Sender: FDA-Public Use
  Company Number: US-009507513-1402USA004293

PATIENT
  Sex: Female
  Weight: 56.69 kg

DRUGS (4)
  1. NUVARING [Suspect]
     Indication: PRODUCT USED FOR UNKNOWN INDICATION
     Dosage: UNK
     Route: 067
     Dates: start: 20090603, end: 20090701
  2. NUVARING [Suspect]
     Dosage: INSERT ONE RING
     Route: 067
     Dates: start: 20110304
  3. NUVARING [Suspect]
     Dosage: INSERT ONE RING
     Route: 067
     Dates: start: 20110511, end: 201109
  4. VITAMINS (UNSPECIFIED) [Concomitant]
     Indication: PRODUCT USED FOR UNKNOWN INDICATION

REACTIONS (2)
  - Pulmonary embolism [Unknown]
  - Deep vein thrombosis [Recovering/Resolving]
